FAERS Safety Report 6284255-7 (Version None)
Quarter: 2009Q3

REPORT INFORMATION
  Report Type: 
  Country: None (occurrence: None)
  Receive Date: 20090727
  Receipt Date: 20090720
  Transmission Date: 20100115
  Serious: Yes (Life-Threatening, Hospitalization, Other)
  Sender: FDA-Public Use
  Company Number: DE-JNJFOC-20090705991

PATIENT
  Age: 81 Year
  Sex: Female

DRUGS (6)
  1. RISPERDAL [Suspect]
     Indication: DRUG USE FOR UNKNOWN INDICATION
     Route: 048
  2. TAXILAN [Suspect]
     Indication: DRUG USE FOR UNKNOWN INDICATION
     Route: 048
  3. ASPIRIN [Concomitant]
     Route: 048
  4. DOMINAL [Concomitant]
     Route: 048
  5. BELOC-ZOK [Concomitant]
     Route: 048
  6. VITAMIN B-12 [Concomitant]
     Route: 048

REACTIONS (1)
  - AGRANULOCYTOSIS [None]
